FAERS Safety Report 23676089 (Version 1)
Quarter: 2024Q1

REPORT INFORMATION
  Report Type: Spontaneous
  Country: US (occurrence: US)
  Receive Date: 20240327
  Receipt Date: 20240327
  Transmission Date: 20240409
  Serious: Yes (Other)
  Sender: FDA-Public Use
  Company Number: US-SA-SAC20240323000056

PATIENT
  Age: 44 Year
  Sex: Female

DRUGS (2)
  1. DUPIXENT [Suspect]
     Active Substance: DUPILUMAB
     Indication: Asthma
     Dosage: 600 MG, 1X
     Route: 058
  2. DUPIXENT [Suspect]
     Active Substance: DUPILUMAB
     Dosage: 300 MG, QOW
     Route: 058

REACTIONS (11)
  - Angina pectoris [Unknown]
  - Rhinorrhoea [Unknown]
  - Fatigue [Unknown]
  - Dry mouth [Unknown]
  - Illness [Unknown]
  - Dysphagia [Unknown]
  - Nasal pruritus [Unknown]
  - Ear pruritus [Unknown]
  - Eye pruritus [Unknown]
  - Asthma [Unknown]
  - Product dose omission issue [Unknown]
